FAERS Safety Report 23325940 (Version 2)
Quarter: 2023Q4

REPORT INFORMATION
  Report Type: Spontaneous
  Country: TR (occurrence: TR)
  Receive Date: 20231221
  Receipt Date: 20231226
  Transmission Date: 20240110
  Serious: Yes (Hospitalization)
  Sender: FDA-Public Use
  Company Number: TR-AstraZeneca-2023-75567

PATIENT
  Age: 5 Month
  Sex: Male

DRUGS (2)
  1. SYNAGIS [Suspect]
     Active Substance: PALIVIZUMAB
     Indication: Antiviral prophylaxis
     Dosage: 5ML/KG MONTHLY
     Route: 030
     Dates: end: 20231203
  2. SYNAGIS [Suspect]
     Active Substance: PALIVIZUMAB
     Indication: Heart disease congenital
     Dosage: 5ML/KG MONTHLY
     Route: 030
     Dates: end: 20231203

REACTIONS (1)
  - Respiratory syncytial virus bronchiolitis [Unknown]
